FAERS Safety Report 4947816-0 (Version None)
Quarter: 2006Q1

REPORT INFORMATION
  Report Type: 
  Country: None (occurrence: None)
  Receive Date: 20060320
  Receipt Date: 20060316
  Transmission Date: 20060701
  Serious: Yes (Hospitalization)
  Sender: FDA-Public Use
  Company Number: 2006004658

PATIENT
  Age: 41 Year
  Sex: Female
  Weight: 110 kg

DRUGS (5)
  1. QUILONUM RETARD [Suspect]
     Dosage: 450MG SEE DOSAGE TEXT
     Route: 048
     Dates: start: 20060315, end: 20060315
  2. PAROXETINE HCL [Suspect]
     Dosage: 20MG SEE DOSAGE TEXT
     Route: 048
     Dates: start: 20060315, end: 20060315
  3. GLUCOPHAGE [Suspect]
     Dosage: 500MG SEE DOSAGE TEXT
     Route: 048
     Dates: start: 20060315, end: 20060315
  4. IBUPROFEN [Suspect]
     Dosage: 800MG SEE DOSAGE TEXT
     Route: 048
     Dates: start: 20060315, end: 20060315
  5. TAFIL [Suspect]
     Dosage: 1MG SEE DOSAGE TEXT
     Route: 048
     Dates: start: 20060315, end: 20060315

REACTIONS (3)
  - FATIGUE [None]
  - INTENTIONAL OVERDOSE [None]
  - SUICIDE ATTEMPT [None]
